FAERS Safety Report 10163163 (Version 1)
Quarter: 2014Q2

REPORT INFORMATION
  Report Type: Spontaneous
  Country: CA (occurrence: CA)
  Receive Date: 20140509
  Receipt Date: 20140509
  Transmission Date: 20141212
  Serious: Yes (Other)
  Sender: FDA-Public Use
  Company Number: CA-GLAXOSMITHKLINE-A1072546A

PATIENT
  Age: 50 Year
  Sex: Female

DRUGS (1)
  1. CEFTIN [Suspect]
     Indication: PRODUCT USED FOR UNKNOWN INDICATION
     Dosage: 500MG TWICE PER DAY
     Route: 048

REACTIONS (3)
  - Jaundice [Recovered/Resolved]
  - Liver function test abnormal [Recovered/Resolved]
  - Pruritus [Recovered/Resolved]
